FAERS Safety Report 14826411 (Version 1)
Quarter: 2018Q2

REPORT INFORMATION
  Report Type: Spontaneous
  Country: FR (occurrence: FR)
  Receive Date: 20180430
  Receipt Date: 20180430
  Transmission Date: 20180711
  Serious: Yes (Hospitalization)
  Sender: FDA-Public Use
  Company Number: PHHY2018FR074658

PATIENT
  Age: 89 Year
  Sex: Female

DRUGS (2)
  1. BISOCE [Suspect]
     Active Substance: BISOPROLOL
     Indication: MEDICATION ERROR
     Dosage: 1.25 MG, UNK
     Route: 048
  2. ALPRAZOLAM. [Suspect]
     Active Substance: ALPRAZOLAM
     Indication: MEDICATION ERROR
     Dosage: 0.25 MG, UNK
     Route: 048

REACTIONS (3)
  - Wrong drug administered [Recovered/Resolved]
  - Hypotension [Recovered/Resolved]
  - Fall [Recovering/Resolving]

NARRATIVE: CASE EVENT DATE: 20171206
